FAERS Safety Report 8344130-0 (Version None)
Quarter: 2012Q2

REPORT INFORMATION
  Report Type: 
  Country: None (occurrence: None)
  Receive Date: 20120508
  Receipt Date: 20120501
  Transmission Date: 20120825
  Serious: Yes (Hospitalization)
  Sender: FDA-Public Use
  Company Number: PHHY2012EC038857

PATIENT
  Sex: Female

DRUGS (3)
  1. DIOVAN [Suspect]
     Dosage: 1 TABLET (160MG) DAILY
     Route: 048
     Dates: start: 20120412
  2. EXELON [Concomitant]
     Dosage: 1 PATCH (9.5 MG/10CM) DAILY
  3. DIOVAN [Suspect]
     Indication: HYPERTENSION
     Dosage: 1 TABLET (80MG) DAILY
     Route: 048
     Dates: start: 20110807, end: 20120407

REACTIONS (4)
  - URINARY TRACT INFECTION [None]
  - DIABETES MELLITUS INADEQUATE CONTROL [None]
  - BLOOD PRESSURE INADEQUATELY CONTROLLED [None]
  - DRUG INEFFECTIVE [None]
